FAERS Safety Report 4448419-7 (Version None)
Quarter: 2004Q3

REPORT INFORMATION
  Report Type: 
  Country: None (occurrence: None)
  Receive Date: 20040729
  Receipt Date: 20030602
  Transmission Date: 20050211
  Serious: Yes (Other)
  Sender: FDA-Public Use
  Company Number: NSADSS2003024902

PATIENT
  Age: 50 Year
  Sex: Male

DRUGS (11)
  1. RISPERDAL [Suspect]
     Indication: SCHIZOPHRENIA
     Dosage: S2 MG 2 IN 24 HOUR ORAL
     Route: 048
     Dates: end: 20030301
  2. THORAZINE [Concomitant]
  3. BENZTROPINE MESYLATE [Concomitant]
  4. NITROGLYCERIN [Concomitant]
  5. ACIPHEX [Concomitant]
  6. MONOPRIL [Concomitant]
  7. CLARITIN [Concomitant]
  8. ASPIRIN [Concomitant]
  9. CITALOPRAM HYDROBROMIDE (CITALOPRAM HYDROBROMIDE) [Concomitant]
  10. CLONAZEPAM [Concomitant]
  11. BUSPIRONE [Concomitant]

REACTIONS (3)
  - DYSKINESIA [None]
  - MYOCARDIAL INFARCTION [None]
  - TRANSIENT ISCHAEMIC ATTACK [None]
